FAERS Safety Report 16286450 (Version 1)
Quarter: 2019Q2

REPORT INFORMATION
  Report Type: Spontaneous
  Country: US (occurrence: US)
  Receive Date: 20190402
  Receipt Date: 20190402
  Transmission Date: 20190711
  Serious: Yes (Hospitalization)
  Sender: FDA-Public Use
  Company Number: None

PATIENT
  Age: 73 Year
  Sex: Male
  Weight: 101 kg

DRUGS (4)
  1. ENOXAPARIN [Suspect]
     Active Substance: ENOXAPARIN
     Indication: ATRIAL FIBRILLATION
     Route: 058
     Dates: start: 20190321, end: 20190330
  2. ENOXAPARIN [Suspect]
     Active Substance: ENOXAPARIN
     Indication: MITRAL VALVE REPLACEMENT
     Route: 058
     Dates: start: 20190321, end: 20190330
  3. ENOXAPARIN [Suspect]
     Active Substance: ENOXAPARIN
     Indication: SURGERY
     Route: 058
     Dates: start: 20190321, end: 20190330
  4. WARFARIN [Suspect]
     Active Substance: WARFARIN
     Dosage: ?          OTHER DOSE:UNITS;?
     Route: 048
     Dates: start: 20190322, end: 20190330

REACTIONS (8)
  - Failure to thrive [None]
  - Aortic aneurysm [None]
  - Anticoagulation drug level below therapeutic [None]
  - Retroperitoneal haematoma [None]
  - Haemorrhage [None]
  - Haematoma [None]
  - Prothrombin time prolonged [None]
  - Activated partial thromboplastin time prolonged [None]

NARRATIVE: CASE EVENT DATE: 20190330
